FAERS Safety Report 25682451 (Version 3)
Quarter: 2025Q3

REPORT INFORMATION
  Report Type: Spontaneous
  Country: CH (occurrence: CH)
  Receive Date: 20250814
  Receipt Date: 20250917
  Transmission Date: 20251020
  Serious: Yes (Death, Hospitalization, Other)
  Sender: BIOVITRUM
  Company Number: CH-BIOVITRUM-2025-CH-011010

PATIENT
  Age: 69 Year
  Sex: Female

DRUGS (5)
  1. ANAKINRA [Suspect]
     Active Substance: ANAKINRA
     Indication: Still^s disease
     Dates: start: 202006
  2. ANAKINRA [Suspect]
     Active Substance: ANAKINRA
     Indication: Haemophagocytic lymphohistiocytosis
     Dates: start: 2025
  3. ANAKINRA [Suspect]
     Active Substance: ANAKINRA
  4. CYCLOSPORINE [Suspect]
     Active Substance: CYCLOSPORINE
     Indication: Still^s disease
  5. CYCLOSPORINE [Suspect]
     Active Substance: CYCLOSPORINE
     Indication: Haemophagocytic lymphohistiocytosis

REACTIONS (11)
  - Escherichia sepsis [Recovering/Resolving]
  - Pulmonary hypertension [Unknown]
  - Cytomegalovirus infection reactivation [Recovering/Resolving]
  - Still^s disease [Unknown]
  - Haemophagocytic lymphohistiocytosis [Unknown]
  - Condition aggravated [Unknown]
  - Thrombotic thrombocytopenic purpura [Unknown]
  - Off label use [Unknown]
  - Disseminated intravascular coagulation [Unknown]
  - Cardiac failure [Fatal]
  - Alveolar proteinosis [Fatal]

NARRATIVE: CASE EVENT DATE: 20200601
